FAERS Safety Report 5027757-3 (Version None)
Quarter: 2006Q2

REPORT INFORMATION
  Report Type: 
  Country: None (occurrence: None)
  Receive Date: 20060609
  Receipt Date: 20060530
  Transmission Date: 20061013
  Serious: Yes (Other)
  Sender: FDA-Public Use
  Company Number: 2006050628

PATIENT
  Age: 61 Year
  Sex: Male

DRUGS (4)
  1. EPELIN [Suspect]
     Indication: CONVULSION
     Dosage: ORAL
     Route: 048
     Dates: start: 19820101, end: 20051201
  2. PHENYTOIN SODIUM [Suspect]
     Indication: CONVULSION
     Dosage: ORAL
     Route: 048
     Dates: start: 20060401
  3. PHENYTOIN SODIUM [Suspect]
     Indication: TAENIASIS
     Dosage: ORAL
     Route: 048
     Dates: start: 20060401
  4. HIDANTAL (PHENYTOIN) [Suspect]
     Indication: TAENIASIS

REACTIONS (4)
  - CONVULSION [None]
  - DISEASE RECURRENCE [None]
  - DIZZINESS [None]
  - LABYRINTHITIS [None]
